FAERS Safety Report 19935067 (Version 5)
Quarter: 2022Q1

REPORT INFORMATION
  Report Type: Report from Study
  Country: JP (occurrence: JP)
  Receive Date: 20211009
  Receipt Date: 20220331
  Transmission Date: 20220423
  Serious: Yes (Death, Hospitalization, Disabling)
  Sender: FDA-Public Use
  Company Number: JP-ABBVIE-21K-087-4108900-00

PATIENT
  Age: 14 Year
  Sex: Male
  Weight: 50 kg

DRUGS (41)
  1. VENCLEXTA [Suspect]
     Active Substance: VENETOCLAX
     Indication: Acute myeloid leukaemia
     Route: 048
     Dates: start: 20210409, end: 2021
  2. VENCLEXTA [Suspect]
     Active Substance: VENETOCLAX
     Route: 048
  3. CIDOFOVIR [Suspect]
     Active Substance: CIDOFOVIR
     Indication: Product used for unknown indication
     Route: 065
  4. AZACITIDINE [Suspect]
     Active Substance: AZACITIDINE
     Indication: Acute myeloid leukaemia
     Route: 050
     Dates: start: 20210409, end: 20210415
  5. AZACITIDINE [Suspect]
     Active Substance: AZACITIDINE
     Route: 050
  6. RAMOSETRON HYDROCHLORIDE [Concomitant]
     Active Substance: RAMOSETRON HYDROCHLORIDE
     Indication: Acute myeloid leukaemia
     Route: 050
     Dates: start: 20210409, end: 20210415
  7. MICAFUNGIN SODIUM [Concomitant]
     Active Substance: MICAFUNGIN SODIUM
     Indication: Acute myeloid leukaemia
     Route: 050
     Dates: start: 20210408
  8. PIPERACILLIN SODIUM\TAZOBACTAM SODIUM [Concomitant]
     Active Substance: PIPERACILLIN SODIUM\TAZOBACTAM SODIUM
     Indication: Acute myeloid leukaemia
     Route: 050
     Dates: start: 20210408, end: 20210421
  9. PREDNISOLONE SODIUM SUCCINATE [Concomitant]
     Active Substance: PREDNISOLONE SODIUM SUCCINATE
     Indication: Acute myeloid leukaemia
     Route: 050
     Dates: start: 20210409
  10. GASTER [Concomitant]
     Active Substance: FAMOTIDINE
     Indication: Acute myeloid leukaemia
     Route: 050
     Dates: start: 20210409
  11. ACYCLOVIR [Concomitant]
     Active Substance: ACYCLOVIR
     Indication: Acute myeloid leukaemia
     Route: 048
     Dates: start: 20210311, end: 20210415
  12. ACYCLOVIR [Concomitant]
     Active Substance: ACYCLOVIR
     Route: 050
     Dates: start: 20210412
  13. POLYETHYLENE GLYCOL [Concomitant]
     Active Substance: POLYETHYLENE GLYCOL
     Indication: Acute myeloid leukaemia
     Route: 050
     Dates: start: 20210413, end: 20210413
  14. HYDROXYZINE HYDROCHLORIDE [Concomitant]
     Active Substance: HYDROXYZINE HYDROCHLORIDE
     Indication: Acute myeloid leukaemia
     Route: 050
     Dates: start: 20210417, end: 20210417
  15. METHOTREXATE [Concomitant]
     Active Substance: METHOTREXATE
     Indication: Acute myeloid leukaemia
     Route: 050
     Dates: start: 20210419
  16. CYTARABINE [Concomitant]
     Active Substance: CYTARABINE
     Indication: Acute myeloid leukaemia
     Route: 050
     Dates: start: 20210419
  17. HYDROCORTISONE SODIUM SUCCINATE [Concomitant]
     Active Substance: HYDROCORTISONE SODIUM SUCCINATE
     Indication: Acute myeloid leukaemia
     Route: 050
     Dates: start: 20210419
  18. MIDAZOLAM [Concomitant]
     Active Substance: MIDAZOLAM
     Indication: Acute myeloid leukaemia
     Route: 050
     Dates: start: 20210419, end: 20210419
  19. PENTAZOCINE [Concomitant]
     Active Substance: PENTAZOCINE
     Indication: Acute myeloid leukaemia
     Route: 050
     Dates: start: 20210419, end: 20210419
  20. CAMOSTAT MESYLATE [Concomitant]
     Active Substance: CAMOSTAT MESYLATE
     Indication: Acute myeloid leukaemia
     Route: 048
     Dates: start: 20210324, end: 20210415
  21. MEROPENEM [Concomitant]
     Active Substance: MEROPENEM
     Indication: Acute myeloid leukaemia
     Route: 050
     Dates: start: 20210421
  22. TEICOPLANIN [Concomitant]
     Active Substance: TEICOPLANIN
     Indication: Acute myeloid leukaemia
     Route: 050
     Dates: start: 20210423
  23. PENTAMIDINE ISETHIONATE [Concomitant]
     Active Substance: PENTAMIDINE ISETHIONATE
     Indication: Acute myeloid leukaemia
     Route: 061
     Dates: start: 20210426, end: 20210426
  24. ACETAMINOPHEN [Concomitant]
     Active Substance: ACETAMINOPHEN
     Indication: Acute myeloid leukaemia
     Route: 050
     Dates: start: 20210505
  25. DEXTROSE\SODIUM CHLORIDE\SODIUM LACTATE [Concomitant]
     Active Substance: DEXTROSE\SODIUM CHLORIDE\SODIUM LACTATE
     Indication: Acute myeloid leukaemia
     Route: 050
     Dates: start: 20210408
  26. MAGNESIUM SULFATE [Concomitant]
     Active Substance: MAGNESIUM SULFATE
     Indication: Acute myeloid leukaemia
     Route: 050
     Dates: start: 20210408
  27. HEPARIN SODIUM [Concomitant]
     Active Substance: HEPARIN SODIUM
     Indication: Acute myeloid leukaemia
     Route: 050
     Dates: start: 20210408
  28. POTASSIUM CHLORIDE [Concomitant]
     Active Substance: POTASSIUM CHLORIDE
     Indication: Acute myeloid leukaemia
     Route: 050
     Dates: start: 20210415
  29. ALLOPURINOL [Concomitant]
     Active Substance: ALLOPURINOL
     Indication: Acute myeloid leukaemia
     Route: 048
     Dates: start: 20210408
  30. LETERMOVIR [Concomitant]
     Active Substance: LETERMOVIR
     Indication: Acute myeloid leukaemia
     Route: 048
     Dates: start: 20210327, end: 20210415
  31. PREDNISOLONE [Concomitant]
     Active Substance: PREDNISOLONE
     Indication: Acute myeloid leukaemia
     Route: 048
     Dates: start: 20210408, end: 20210415
  32. URSODIOL [Concomitant]
     Active Substance: URSODIOL
     Indication: Acute myeloid leukaemia
     Route: 048
     Dates: start: 20200412
  33. FAMOTIDINE [Concomitant]
     Active Substance: FAMOTIDINE
     Indication: Acute myeloid leukaemia
     Route: 048
     Dates: start: 20210327, end: 20210415
  34. BETAMETHASONE BUTYRATE PROPIONATE [Concomitant]
     Active Substance: BETAMETHASONE BUTYRATE PROPIONATE
     Indication: Acute myeloid leukaemia
     Route: 061
     Dates: start: 20210410
  35. HEPARINOID [Concomitant]
     Indication: Acute myeloid leukaemia
     Route: 061
     Dates: start: 20210410
  36. 1,4-DIMETHYL-7-ISOPROPYLAZULENE [Concomitant]
     Indication: Acute myeloid leukaemia
     Route: 061
     Dates: start: 20210422
  37. OLANZAPINE [Concomitant]
     Active Substance: OLANZAPINE
     Indication: Acute myeloid leukaemia
     Route: 048
     Dates: start: 20210417
  38. LOXOPROFEN SODIUM DIHYDRATE [Concomitant]
     Active Substance: LOXOPROFEN SODIUM DIHYDRATE
     Indication: Acute myeloid leukaemia
     Route: 062
     Dates: start: 20210425
  39. KETOPROFEN [Concomitant]
     Active Substance: KETOPROFEN
     Indication: Acute myeloid leukaemia
     Route: 062
     Dates: start: 20210425
  40. WHITE PETROLATUM [Concomitant]
     Active Substance: PETROLATUM
     Indication: Acute myeloid leukaemia
     Route: 061
     Dates: start: 20210428
  41. AZACITIDINE [Concomitant]
     Active Substance: AZACITIDINE
     Indication: Acute myeloid leukaemia

REACTIONS (8)
  - Death [Fatal]
  - Acute graft versus host disease [Unknown]
  - Pancreatitis acute [Unknown]
  - Polyomavirus-associated nephropathy [Unknown]
  - Renal impairment [Not Recovered/Not Resolved]
  - Haemoglobin decreased [Not Recovered/Not Resolved]
  - Platelet count decreased [Not Recovered/Not Resolved]
  - White blood cell count decreased [Recovering/Resolving]

NARRATIVE: CASE EVENT DATE: 20210409
